FAERS Safety Report 11667233 (Version 1)
Quarter: 2015Q4

REPORT INFORMATION
  Report Type: Spontaneous
  Country: US (occurrence: US)
  Receive Date: 20151027
  Receipt Date: 20151027
  Transmission Date: 20160304
  Serious: No
  Sender: FDA-Public Use
  Company Number: US-ELI_LILLY_AND_COMPANY-US201002005716

PATIENT
  Age: 85 Year
  Sex: Female

DRUGS (2)
  1. FORTEO [Suspect]
     Active Substance: TERIPARATIDE
     Dosage: UNK, UNK
     Dates: end: 200912
  2. FORTEO [Suspect]
     Active Substance: TERIPARATIDE
     Dosage: UNK,UNK

REACTIONS (2)
  - Pain [Recovering/Resolving]
  - Pain in extremity [Recovering/Resolving]
